FAERS Safety Report 5716911-0 (Version None)
Quarter: 2008Q2

REPORT INFORMATION
  Report Type: 
  Country: None (occurrence: None)
  Receive Date: 20080424
  Receipt Date: 20080416
  Transmission Date: 20081010
  Serious: Yes (Other)
  Sender: FDA-Public Use
  Company Number: BW-BOEHRINGER INGELHEIM GMBH, GERMANY-2006-BP-14102BP

PATIENT
  Age: 32 Year
  Sex: Female

DRUGS (4)
  1. VIRAMUNE [Suspect]
     Indication: HIV INFECTION
     Route: 048
     Dates: start: 20050318
  2. ZERIT [Suspect]
     Route: 048
     Dates: start: 20040213
  3. EPIVIR [Suspect]
     Route: 048
     Dates: start: 20040213
  4. SUSTIVA [Suspect]
     Route: 048
     Dates: start: 20040213, end: 20050318

REACTIONS (2)
  - ABORTION SPONTANEOUS [None]
  - DRUG EXPOSURE DURING PREGNANCY [None]
